FAERS Safety Report 8296163-0 (Version None)
Quarter: 2012Q2

REPORT INFORMATION
  Report Type: 
  Country: None (occurrence: None)
  Receive Date: 20120418
  Receipt Date: 20120413
  Transmission Date: 20120825
  Serious: Yes (Other)
  Sender: FDA-Public Use
  Company Number: DE-GLAXOSMITHKLINE-D0075245A

PATIENT
  Age: 82 Year
  Sex: Female

DRUGS (2)
  1. MULTIPLE MEDICATION [Concomitant]
     Route: 065
  2. FLUTICASONE PROPIONATE/SALMETEROL [Suspect]
     Route: 055

REACTIONS (2)
  - CHOKING [None]
  - BRONCHITIS [None]
